FAERS Safety Report 23982467 (Version 1)
Quarter: 2024Q2

REPORT INFORMATION
  Report Type: Spontaneous
  Country: CA (occurrence: CA)
  Receive Date: 20240617
  Receipt Date: 20240617
  Transmission Date: 20240715
  Serious: Yes (Hospitalization)
  Sender: FDA-Public Use
  Company Number: CA-MYLANLABS-2024M1054313

PATIENT
  Age: 81 Year
  Sex: Male

DRUGS (2)
  1. INSPRA [Suspect]
     Active Substance: EPLERENONE
     Indication: Product used for unknown indication
     Dosage: 6.25 MILLIGRAM, QD (EVERY 1 DAY)
     Route: 065
  2. ENTRESTO [Suspect]
     Active Substance: SACUBITRIL\VALSARTAN
     Indication: Product used for unknown indication
     Dosage: 1 DOSAGE FORM, BID (2 EVERY 1 DAY)
     Route: 048

REACTIONS (4)
  - Blood creatinine increased [Recovered/Resolved]
  - Hypervolaemia [Recovered/Resolved]
  - Renal failure [Recovered/Resolved]
  - Urine flow decreased [Recovered/Resolved]
